FAERS Safety Report 4289483-8 (Version None)
Quarter: 2004Q1

REPORT INFORMATION
  Report Type: 
  Country: None (occurrence: None)
  Receive Date: 20040210
  Receipt Date: 20040115
  Transmission Date: 20041129
  Serious: Yes (Hospitalization)
  Sender: FDA-Public Use
  Company Number: 200410194FR

PATIENT
  Age: 68 Year
  Sex: Female

DRUGS (12)
  1. LASILIX 40 MG [Suspect]
     Route: 048
     Dates: end: 20031007
  2. PROZAC [Suspect]
     Indication: DYSTHYMIC DISORDER
     Route: 048
     Dates: end: 20031007
  3. IMOVANE [Concomitant]
     Route: 048
  4. TOPALGIC 50 MG [Concomitant]
     Route: 048
  5. HALDOL FAIBLE SOLUTION BUVABLE A 0.5 MG/ML [Concomitant]
     Route: 048
  6. FUMAFER [Concomitant]
     Route: 048
  7. MOPRAL [Concomitant]
     Route: 048
  8. XANAX [Concomitant]
     Route: 048
  9. ZOCOR [Concomitant]
     Indication: HYPERCHOLESTEROLAEMIA
     Route: 048
  10. PLAVIX [Concomitant]
     Indication: MYOCARDIAL ISCHAEMIA
     Route: 048
  11. CORDARONE [Concomitant]
     Indication: ARRHYTHMIA
     Route: 048
  12. DIFFU K [Concomitant]
     Route: 048
     Dates: end: 20031007

REACTIONS (6)
  - ANAEMIA [None]
  - DRUG INTERACTION [None]
  - FALL [None]
  - HYPONATRAEMIA [None]
  - PYREXIA [None]
  - URINARY TRACT INFECTION [None]
